FAERS Safety Report 23634802 (Version 4)
Quarter: 2024Q4

REPORT INFORMATION
  Report Type: Spontaneous
  Country: NL (occurrence: NL)
  Receive Date: 20240315
  Receipt Date: 20241105
  Transmission Date: 20250115
  Serious: Yes (Hospitalization)
  Sender: Unknown Manufacturer
  Company Number: NL-GILEAD-2024-0663834

PATIENT
  Sex: Male
  Weight: 83 kg

DRUGS (32)
  1. PEMETREXED [Suspect]
     Active Substance: PEMETREXED
     Indication: Non-small cell lung cancer metastatic
     Dosage: 1050 MG
     Dates: start: 20240109, end: 20240109
  2. PEMETREXED [Suspect]
     Active Substance: PEMETREXED
     Dosage: 1050 MG
     Dates: start: 20240319, end: 20240319
  3. PEMETREXED [Suspect]
     Active Substance: PEMETREXED
     Dosage: 1050 MG
     Dates: start: 20240220, end: 20240220
  4. PEMETREXED [Suspect]
     Active Substance: PEMETREXED
     Dosage: 1050 MG
     Dates: start: 20231219, end: 20231219
  5. PEMETREXED [Suspect]
     Active Substance: PEMETREXED
     Dosage: 540 MG
     Dates: start: 20240130, end: 20240130
  6. PEMETREXED [Suspect]
     Active Substance: PEMETREXED
     Dosage: 540 MG
     Dates: start: 20240409, end: 20240910
  7. PEMBROLIZUMAB [Suspect]
     Active Substance: PEMBROLIZUMAB
     Indication: Non-small cell lung cancer metastatic
     Dosage: 200 MG
     Dates: start: 20240220, end: 20240220
  8. PEMBROLIZUMAB [Suspect]
     Active Substance: PEMBROLIZUMAB
     Dosage: 200 MG
     Dates: start: 20240130, end: 20240130
  9. PEMBROLIZUMAB [Suspect]
     Active Substance: PEMBROLIZUMAB
     Dosage: 200 MG
     Dates: start: 20240109, end: 20240109
  10. PEMBROLIZUMAB [Suspect]
     Active Substance: PEMBROLIZUMAB
     Dosage: 200 MG
     Dates: start: 20231219, end: 20231219
  11. PEMBROLIZUMAB [Suspect]
     Active Substance: PEMBROLIZUMAB
     Dosage: 200 MG
     Dates: start: 20240319, end: 20240319
  12. PEMBROLIZUMAB [Suspect]
     Active Substance: PEMBROLIZUMAB
     Dosage: 200 MG
     Dates: start: 20240409, end: 20240910
  13. CARBOPLATIN [Suspect]
     Active Substance: CARBOPLATIN
     Indication: Non-small cell lung cancer metastatic
     Dosage: 510 MG
     Dates: start: 20240220, end: 20240220
  14. CARBOPLATIN [Suspect]
     Active Substance: CARBOPLATIN
     Dosage: 550 MG
     Dates: start: 20240109, end: 20240109
  15. CARBOPLATIN [Suspect]
     Active Substance: CARBOPLATIN
     Dosage: 560 MG
     Dates: start: 20231219, end: 20231219
  16. CARBOPLATIN [Suspect]
     Active Substance: CARBOPLATIN
     Dosage: 526.35 MG
     Dates: start: 20240130, end: 20240130
  17. POLYETHYLENE GLYCOLS [Concomitant]
     Active Substance: POLYETHYLENE GLYCOLS
     Indication: Constipation
     Dates: start: 20231221, end: 20240229
  18. METOCLOPRAMIDE [Concomitant]
     Active Substance: METOCLOPRAMIDE
     Indication: Premedication
     Dates: start: 20231219
  19. EZETIMIBE [Concomitant]
     Active Substance: EZETIMIBE
     Indication: Hypercholesterolaemia
     Dates: start: 2015
  20. HYDROXOCOBALAMIN [Concomitant]
     Active Substance: HYDROXOCOBALAMIN
     Indication: Prophylaxis
     Dates: start: 20231207
  21. APREPITANT [Concomitant]
     Active Substance: APREPITANT
     Indication: Premedication
     Dates: start: 20231219, end: 20240223
  22. APREPITANT [Concomitant]
     Active Substance: APREPITANT
     Dates: start: 20231219, end: 20240323
  23. VALSARTAN [Concomitant]
     Active Substance: VALSARTAN
     Indication: Hypertension
     Dates: start: 2015
  24. LACTULOSE [Concomitant]
     Active Substance: LACTULOSE
     Indication: Constipation
     Dates: start: 20240129
  25. GRANISETRON [Concomitant]
     Active Substance: GRANISETRON
     Indication: Premedication
     Dates: start: 20231219
  26. GRANISETRON [Concomitant]
     Active Substance: GRANISETRON
     Dates: start: 20231219, end: 20240221
  27. FOLIC ACID [Concomitant]
     Active Substance: FOLIC ACID
     Indication: Prophylaxis
     Dates: start: 20231207
  28. HYDROCHLOROTHIAZIDE [Concomitant]
     Active Substance: HYDROCHLOROTHIAZIDE
     Indication: Hypertension
     Dates: start: 2015
  29. SODIUM LAURYL SULFOACETATE [Concomitant]
     Active Substance: SODIUM LAURYL SULFOACETATE
     Indication: Abdominal pain
     Dates: start: 20240227
  30. SORBITOL [Concomitant]
     Active Substance: SORBITOL
     Indication: Abdominal pain
     Dosage: UNK
     Route: 065
     Dates: start: 20240227
  31. BECLOMETHASONE\FORMOTEROL [Concomitant]
     Active Substance: BECLOMETHASONE\FORMOTEROL
     Indication: Prophylaxis
     Route: 055
     Dates: start: 20221111
  32. DEXAMETHASONE [Concomitant]
     Active Substance: DEXAMETHASONE
     Indication: Premedication
     Dates: start: 20231219

REACTIONS (1)
  - Splenic infarction [Recovered/Resolved]

NARRATIVE: CASE EVENT DATE: 20240227
